FAERS Safety Report 25576663 (Version 1)
Quarter: 2025Q3

REPORT INFORMATION
  Report Type: Spontaneous
  Country: JP (occurrence: JP)
  Receive Date: 20250718
  Receipt Date: 20250718
  Transmission Date: 20251021
  Serious: Yes (Death, Hospitalization, Other)
  Sender: Norvium Bioscience
  Company Number: JP-Norvium Bioscience LLC-080399

PATIENT
  Age: 70 Year
  Sex: Male

DRUGS (2)
  1. METFORMIN HYDROCHLORIDE [Suspect]
     Active Substance: METFORMIN HYDROCHLORIDE
     Indication: Diabetes mellitus
  2. DOCETAXEL [Suspect]
     Active Substance: DOCETAXEL
     Indication: Hormone-refractory prostate cancer

REACTIONS (8)
  - Lactic acidosis [Fatal]
  - Febrile neutropenia [Unknown]
  - Septic shock [Fatal]
  - Decreased appetite [Unknown]
  - Dehydration [Unknown]
  - Acute kidney injury [Unknown]
  - Ventricular fibrillation [Fatal]
  - Pulseless electrical activity [Fatal]
